FAERS Safety Report 5201503-2 (Version None)
Quarter: 2006Q4

REPORT INFORMATION
  Report Type: 
  Country: None (occurrence: None)
  Receive Date: 20061004
  Receipt Date: 20060725
  Transmission Date: 20070319
  Serious: Yes (Other)
  Sender: FDA-Public Use
  Company Number: 29157

PATIENT
  Age: 68 Year
  Sex: Male
  Weight: 72.5755 kg

DRUGS (2)
  1. OCTREOTIDE ACETATE [Suspect]
     Indication: NEOPLASM
     Dosage: 150 MCG/X3 PER DAY SQ
     Route: 058
     Dates: start: 20060714
  2. OCTREOTIDE ACETATE [Suspect]
     Indication: NEOPLASM
     Dosage: 150 MCG/X3 PER DAY SQ
     Route: 058
     Dates: start: 20060714

REACTIONS (2)
  - ABDOMINAL DISCOMFORT [None]
  - DIARRHOEA [None]
